FAERS Safety Report 5286110-8 (Version None)
Quarter: 2007Q1

REPORT INFORMATION
  Report Type: 
  Country: None (occurrence: None)
  Receive Date: 20070104
  Receipt Date: 20061115
  Transmission Date: 20070707
  Serious: No
  Sender: FDA-Public Use
  Company Number: BDI-008864

PATIENT
  Age: 39 Year
  Sex: Male

DRUGS (2)
  1. MULTIHANCE [Suspect]
     Indication: DYSPHAGIA
     Dosage: 20 ML ONCE IV
     Route: 042
     Dates: start: 20061110, end: 20061110
  2. MULTIHANCE [Suspect]
     Indication: HYPOAESTHESIA
     Dosage: 20 ML ONCE IV
     Route: 042
     Dates: start: 20061110, end: 20061110

REACTIONS (1)
  - HYPERSENSITIVITY [None]
